FAERS Safety Report 6525059-7 (Version None)
Quarter: 2009Q4

REPORT INFORMATION
  Report Type: 
  Country: None (occurrence: None)
  Receive Date: 20091224
  Receipt Date: 20091208
  Transmission Date: 20100525
  Serious: Yes (Hospitalization, Other)
  Sender: FDA-Public Use
  Company Number: AUR-APL-2009-01522

PATIENT
  Age: 58 Year
  Sex: Female

DRUGS (8)
  1. MIRTAZAPINE [Suspect]
     Indication: DECREASED APPETITE
     Dosage: 15MG - QHS - ORAL
     Route: 048
  2. MIRTAZAPINE [Suspect]
     Indication: INSOMNIA
     Dosage: 15MG - QHS - ORAL
     Route: 048
  3. LEVOFLOXACIN [Suspect]
     Dosage: 500MG - DAILY - ORAL 2 DOSES
     Route: 048
  4. METOCLOPRAMIDE [Suspect]
     Dosage: 10 MG-BEFORE EACH MEAL
  5. ENOXAPARIN SODIUM [Concomitant]
  6. NYSTATIN [Concomitant]
  7. PANTOPRAZOLE [Concomitant]
  8. ACETAMINOPHEN [Concomitant]

REACTIONS (16)
  - BLOOD ALBUMIN DECREASED [None]
  - BLOOD CALCIUM DECREASED [None]
  - BLOOD CHLORIDE DECREASED [None]
  - BLOOD SODIUM DECREASED [None]
  - CONVULSION [None]
  - DRUG INTERACTION [None]
  - ELECTROLYTE IMBALANCE [None]
  - EYE ROLLING [None]
  - FAECAL INCONTINENCE [None]
  - FOAMING AT MOUTH [None]
  - KLEBSIELLA BACTERAEMIA [None]
  - LOSS OF CONSCIOUSNESS [None]
  - PAIN [None]
  - PYREXIA [None]
  - RASH [None]
  - TONIC CLONIC MOVEMENTS [None]
